FAERS Safety Report 19734286 (Version 1)
Quarter: 2021Q3

REPORT INFORMATION
  Report Type: Spontaneous
  Country: US (occurrence: US)
  Receive Date: 20210823
  Receipt Date: 20210823
  Transmission Date: 20211014
  Serious: No
  Sender: FDA-Public Use
  Company Number: US-SA-2021SA276041

PATIENT
  Sex: Female

DRUGS (4)
  1. SOTALOL. [Concomitant]
     Active Substance: SOTALOL
     Dosage: UNK
  2. MULTAQ [Suspect]
     Active Substance: DRONEDARONE
     Indication: ATRIAL FIBRILLATION
     Dosage: 400 MG, BID
     Dates: end: 20210812
  3. COVID?19 VACCINE [Concomitant]
     Dosage: UNK
     Dates: start: 20210730
  4. DILTIAZEM. [Concomitant]
     Active Substance: DILTIAZEM
     Dosage: UNK

REACTIONS (4)
  - Headache [Not Recovered/Not Resolved]
  - Illness [Unknown]
  - Vertigo [Not Recovered/Not Resolved]
  - Gait disturbance [Not Recovered/Not Resolved]
